FAERS Safety Report 8070154-7 (Version None)
Quarter: 2012Q1

REPORT INFORMATION
  Report Type: 
  Country: None (occurrence: None)
  Receive Date: 20120125
  Receipt Date: 20120122
  Transmission Date: 20120608
  Serious: Yes (Other)
  Sender: FDA-Public Use
  Company Number: CA-ROCHE-1000309

PATIENT
  Sex: Female
  Weight: 102.8 kg

DRUGS (3)
  1. PEGASYS [Suspect]
     Indication: HEPATITIS C
     Route: 058
     Dates: start: 20110611, end: 20110921
  2. COPEGUS [Suspect]
     Indication: HEPATITIS C
     Route: 048
     Dates: start: 20110611, end: 20110921
  3. CYMBALTA [Concomitant]
     Route: 048

REACTIONS (5)
  - LUNG NEOPLASM [None]
  - ANAEMIA [None]
  - PRODUCTIVE COUGH [None]
  - DYSPNOEA [None]
  - SKIN LESION [None]
